FAERS Safety Report 9638049 (Version 2)
Quarter: 2013Q4

REPORT INFORMATION
  Report Type: Spontaneous
  Country: US (occurrence: US)
  Receive Date: 20131022
  Receipt Date: 20131101
  Transmission Date: 20140711
  Serious: No
  Sender: FDA-Public Use
  Company Number: US-PFIZER INC-2013299715

PATIENT
  Age: 77 Year
  Sex: Female

DRUGS (1)
  1. LYRICA [Suspect]
     Indication: NEUROPATHY PERIPHERAL
     Dosage: 300 MG (2 CAPSULES OF 150MG IN MORNING AND 2 CAPSULES OF 150MG AT NIGHT), 2X/DAY
     Route: 048
     Dates: start: 2007, end: 20131013

REACTIONS (1)
  - Pain [Unknown]
